FAERS Safety Report 14037711 (Version 2)
Quarter: 2019Q3

REPORT INFORMATION
  Report Type: Spontaneous
  Country: US (occurrence: US)
  Receive Date: 20171004
  Receipt Date: 20190910
  Transmission Date: 20191004
  Serious: Yes (Other)
  Sender: FDA-Public Use
  Company Number: US-PFIZER INC-2017425570

PATIENT
  Sex: Male

DRUGS (1)
  1. CHANTIX [Suspect]
     Active Substance: VARENICLINE TARTRATE
     Dosage: UNK
     Dates: start: 201707

REACTIONS (14)
  - Panic disorder [Unknown]
  - Mania [Unknown]
  - Lower limb fracture [Unknown]
  - Tobacco user [Unknown]
  - Nightmare [Unknown]
  - Accident [Unknown]
  - Pain [Not Recovered/Not Resolved]
  - Anxiety [Unknown]
  - Thinking abnormal [Unknown]
  - Loss of personal independence in daily activities [Unknown]
  - Paraplegia [Unknown]
  - Insomnia [Unknown]
  - Limb injury [Unknown]
  - Nervousness [Unknown]
